FAERS Safety Report 8942194 (Version 1)
Quarter: 2012Q4

REPORT INFORMATION
  Report Type: Spontaneous
  Country: US (occurrence: None)
  Receive Date: 20121129
  Receipt Date: 20121129
  Transmission Date: 20130627
  Serious: Yes (Other)
  Sender: FDA-Public Use
  Company Number: None

PATIENT
  Age: 40 Year
  Sex: Female
  Weight: 63.96 kg

DRUGS (2)
  1. MUCINEX [Suspect]
     Route: 048
     Dates: start: 20121119, end: 20121121
  2. AIRBORNE [Concomitant]

REACTIONS (5)
  - Headache [None]
  - Oral pain [None]
  - Stomatitis [None]
  - Swelling [None]
  - Blister [None]
